FAERS Safety Report 6231007-X (Version None)
Quarter: 2009Q2

REPORT INFORMATION
  Report Type: 
  Country: None (occurrence: None)
  Receive Date: 20090616
  Receipt Date: 20090605
  Transmission Date: 20091009
  Serious: Yes (Hospitalization)
  Sender: FDA-Public Use
  Company Number: CH-ROCHE-636819

PATIENT
  Age: 77 Year
  Sex: Female

DRUGS (3)
  1. BONIVA [Suspect]
     Dosage: FORM: FILM COATED TABLETS
     Route: 048
     Dates: start: 20090403
  2. PANTOZOL [Concomitant]
     Indication: GASTROOESOPHAGEAL REFLUX DISEASE
  3. CALCIMAGON-D3 [Concomitant]
     Indication: OSTEOPOROSIS

REACTIONS (2)
  - ILEUS [None]
  - RASH [None]
